FAERS Safety Report 15995918 (Version 1)
Quarter: 2019Q1

REPORT INFORMATION
  Report Type: Spontaneous
  Country: US (occurrence: US)
  Receive Date: 20190222
  Receipt Date: 20190222
  Transmission Date: 20190418
  Serious: No
  Sender: FDA-Public Use
  Company Number: US-PERRIGO-18US007520

PATIENT
  Age: 75 Year
  Sex: Male
  Weight: 88.44 kg

DRUGS (1)
  1. LOPERAMIDE HYDROCHLORIDE. [Suspect]
     Active Substance: LOPERAMIDE HYDROCHLORIDE
     Indication: DIARRHOEA
     Dosage: 2 TO 4 MG, PRN
     Route: 048
     Dates: start: 201805, end: 201807

REACTIONS (1)
  - Expired product administered [Recovered/Resolved]

NARRATIVE: CASE EVENT DATE: 201805
